FAERS Safety Report 6315834-6 (Version None)
Quarter: 2009Q3

REPORT INFORMATION
  Report Type: 
  Country: None (occurrence: None)
  Receive Date: 20090820
  Receipt Date: 20071116
  Transmission Date: 20100115
  Serious: Yes (Other)
  Sender: FDA-Public Use
  Company Number: US-ASTRAZENECA-2007UW14911

PATIENT
  Age: 20687 Day
  Sex: Female
  Weight: 110.7 kg

DRUGS (8)
  1. SEROQUEL [Suspect]
     Indication: SLEEP DISORDER
     Dosage: 50-100 MG
     Route: 048
     Dates: start: 20020301, end: 20060602
  2. SEROQUEL [Suspect]
     Indication: ANXIETY
     Dosage: 50-100 MG
     Route: 048
     Dates: start: 20020301, end: 20060602
  3. SEROQUEL [Suspect]
     Indication: DEPRESSION
     Dosage: 50-100 MG
     Route: 048
     Dates: start: 20020301, end: 20060602
  4. SEROQUEL [Suspect]
     Dosage: 25 MG - 75 MG
     Route: 048
     Dates: start: 20030202
  5. SEROQUEL [Suspect]
     Dosage: 25 MG - 75 MG
     Route: 048
     Dates: start: 20030202
  6. SEROQUEL [Suspect]
     Dosage: 25 MG - 75 MG
     Route: 048
     Dates: start: 20030202
  7. ZOLOFT [Concomitant]
     Dates: start: 19960401
  8. ALPRAZOLAM [Concomitant]
     Dates: start: 19960101

REACTIONS (3)
  - DIABETIC GASTROPARESIS [None]
  - HYPERGLYCAEMIA [None]
  - TYPE 2 DIABETES MELLITUS [None]
